FAERS Safety Report 4804463-9 (Version None)
Quarter: 2005Q4

REPORT INFORMATION
  Report Type: 
  Country: None (occurrence: None)
  Receive Date: 20051017
  Receipt Date: 20051003
  Transmission Date: 20060501
  Serious: Yes (Hospitalization)
  Sender: FDA-Public Use
  Company Number: 218548

PATIENT
  Age: 57 Year
  Sex: Male

DRUGS (7)
  1. MABTHERA (RITUXIMAB) CONC FOR SOLUTION FOR INFUSION [Suspect]
     Indication: MANTLE CELL LYMPHOMA
     Dosage: 375 MG/M2
     Dates: start: 20030401, end: 20030501
  2. VINCRISTINE [Suspect]
     Indication: MANTLE CELL LYMPHOMA
     Dosage: 0.4 MG, INTRAVENOUS
     Route: 042
     Dates: start: 20030401, end: 20030501
  3. ADRIAMYCIN PFS [Suspect]
     Indication: MANTLE CELL LYMPHOMA
     Dosage: 9 MG/M2, INTRAVENOUS
     Route: 042
     Dates: start: 20030401, end: 20030501
  4. CHLORAMINOPHENE (CHLORAMBUCIL) [Suspect]
     Indication: MANTLE CELL LYMPHOMA
     Dosage: 12 MG, ORAL
     Route: 048
     Dates: start: 20030401, end: 20030501
  5. DEXAMETHASONE [Suspect]
     Indication: MANTLE CELL LYMPHOMA
     Dosage: 20 MG, ORAL
     Route: 048
     Dates: start: 20030401, end: 20030501
  6. PURINETHOL [Suspect]
     Dosage: 0
  7. CLONAZEPAM [Concomitant]

REACTIONS (2)
  - CYTOMEGALOVIRUS INFECTION [None]
  - MENINGORADICULITIS [None]
